FAERS Safety Report 9381437 (Version 2)
Quarter: 2014Q1

REPORT INFORMATION
  Report Type: Report from Study
  Country: US (occurrence: US)
  Receive Date: 20130703
  Receipt Date: 20140313
  Transmission Date: 20141002
  Serious: Yes (Death, Life-Threatening, Other)
  Sender: FDA-Public Use
  Company Number: US-JNJFOC-20130620401

PATIENT
  Age: 83 Year
  Sex: Male
  Weight: 81.65 kg

DRUGS (14)
  1. ZYTIGA [Suspect]
     Indication: PROSTATE CANCER METASTATIC
     Dosage: STARTED APPROXIMATELY 10 WEEKS AGO
     Route: 048
     Dates: start: 2012
  2. PREDNISONE [Suspect]
     Indication: PRODUCT USED FOR UNKNOWN INDICATION
     Route: 065
     Dates: start: 2013
  3. CITALOPRAM [Concomitant]
     Dosage: TAKING ^FOR A LONG TIME^
     Route: 065
  4. GABAPENTIN [Concomitant]
     Indication: NEUROPATHY PERIPHERAL
     Route: 065
     Dates: start: 2013
  5. DIGOXIN [Concomitant]
     Route: 065
  6. MICARDIS [Concomitant]
     Route: 065
     Dates: start: 2011
  7. METOPROLOL [Concomitant]
     Route: 065
  8. NAMENDA [Concomitant]
     Route: 065
  9. ARICEPT [Concomitant]
     Route: 065
  10. ASPIRIN [Concomitant]
     Route: 065
  11. BICALUTAMIDE [Concomitant]
     Route: 065
     Dates: start: 2012
  12. PRAVASTATIN [Concomitant]
     Dosage: TAKING ^FOR FIVE OR SIX YEARS^
     Route: 065
  13. CALCIUM [Concomitant]
     Route: 065
  14. VITAMINS (NOS) [Concomitant]
     Route: 065

REACTIONS (5)
  - Death [Fatal]
  - Convulsion [Unknown]
  - Aspiration [Unknown]
  - Swelling [Unknown]
  - Gastrointestinal sounds abnormal [Unknown]
